FAERS Safety Report 8928660 (Version 1)
Quarter: 2012Q4

REPORT INFORMATION
  Report Type: Spontaneous
  Country: SV (occurrence: None)
  Receive Date: 20121120
  Receipt Date: 20121120
  Transmission Date: 20130627
  Serious: Yes (Hospitalization, Other)
  Sender: FDA-Public Use
  Company Number: VAL_00998_2012

PATIENT
  Age: 56 Year
  Sex: Female

DRUGS (1)
  1. CALCITRIOL [Suspect]
     Indication: HYPERPARATHYROIDISM TERTIARY

REACTIONS (6)
  - Hypercalcaemia [None]
  - Dermatitis herpetiformis [None]
  - General physical health deterioration [None]
  - Blood parathyroid hormone increased [None]
  - Abdominal pain [None]
  - Inflammation [None]
